FAERS Safety Report 11772098 (Version 1)
Quarter: 2015Q4

REPORT INFORMATION
  Report Type: Spontaneous
  Country: ES (occurrence: ES)
  Receive Date: 20151124
  Receipt Date: 20151124
  Transmission Date: 20160304
  Serious: Yes (Other)
  Sender: FDA-Public Use
  Company Number: ES-MYLANLABS-2015M1041081

PATIENT

DRUGS (2)
  1. CLINDAMYCIN [Suspect]
     Active Substance: CLINDAMYCIN\CLINDAMYCIN PHOSPHATE
     Indication: SEPTIC SHOCK
     Dosage: UNK
     Route: 065
  2. DORIPENEM [Suspect]
     Active Substance: DORIPENEM
     Indication: SEPTIC SHOCK
     Dosage: UNK
     Route: 065

REACTIONS (2)
  - Toxic skin eruption [Recovered/Resolved]
  - Eosinophilia [Recovered/Resolved]
